FAERS Safety Report 12285809 (Version 2)
Quarter: 2016Q2

REPORT INFORMATION
  Report Type: Spontaneous
  Country: US (occurrence: US)
  Receive Date: 20160420
  Receipt Date: 20160427
  Transmission Date: 20160815
  Serious: Yes (Hospitalization, Other)
  Sender: FDA-Public Use
  Company Number: US-BAXTER-2016BAX019597

PATIENT
  Age: 24 Year
  Sex: Female

DRUGS (1)
  1. CLINIMIX E [Suspect]
     Active Substance: ALANINE\AMINO ACIDS\ARGININE\CALCIUM CHLORIDE\DEXTROSE\GLYCINE\HISTIDINE\ISOLEUCINE\LEUCINE\LYSINE\MAGNESIUM CHLORIDE\METHIONINE\PHENYLALANINE\POTASSIUM PHOSPHATE, DIBASIC\PROLINE\PROLINE, DL-\SERINE\SODIUM ACETATE\SODIUM CHLORIDE\THREONINE\TRYPTOPHAN\TYROSINE\VALINE
     Indication: PRODUCT USED FOR UNKNOWN INDICATION
     Dosage: RATE OF 2L OVER 24 HOURS
     Route: 042
     Dates: start: 201604, end: 20160404

REACTIONS (2)
  - Catheter site pain [Recovered/Resolved]
  - Deep vein thrombosis [Recovered/Resolved]

NARRATIVE: CASE EVENT DATE: 20160404
